FAERS Safety Report 8542176-0 (Version None)
Quarter: 2012Q3

REPORT INFORMATION
  Report Type: 
  Country: None (occurrence: None)
  Receive Date: 20120726
  Receipt Date: 20111007
  Transmission Date: 20120928
  Serious: No
  Sender: FDA-Public Use
  Company Number: US-ASTRAZENECA-2011SE60542

PATIENT
  Sex: Male

DRUGS (2)
  1. SEROQUEL [Suspect]
     Indication: INSOMNIA
     Dosage: 6.25 MG OF SEROQUEL 25 MG FOR FOUR DAYS
     Route: 048
     Dates: start: 20110929
  2. SEROQUEL [Suspect]
     Dosage: 12.5 MG
     Route: 048

REACTIONS (4)
  - IRRITABILITY [None]
  - DIZZINESS [None]
  - INCORRECT DOSE ADMINISTERED [None]
  - OFF LABEL USE [None]
